FAERS Safety Report 4482587-6 (Version None)
Quarter: 2004Q4

REPORT INFORMATION
  Report Type: 
  Country: None (occurrence: None)
  Receive Date: 20041022
  Receipt Date: 20040211
  Transmission Date: 20050328
  Serious: Yes (Hospitalization)
  Sender: FDA-Public Use
  Company Number: BE-JNJFOC-20040202821

PATIENT
  Sex: Male

DRUGS (1)
  1. PROPULSID [Suspect]
     Route: 065
     Dates: start: 20031022, end: 20031106

REACTIONS (3)
  - SMALL INTESTINAL OBSTRUCTION [None]
  - SMALL INTESTINE CARCINOMA [None]
  - SMALL INTESTINE CARCINOMA RECURRENT [None]
